FAERS Safety Report 5971742-1 (Version None)
Quarter: 2008Q4

REPORT INFORMATION
  Report Type: 
  Country: None (occurrence: None)
  Receive Date: 20081201
  Receipt Date: 20081117
  Transmission Date: 20090506
  Serious: Yes (Death, Hospitalization, Other)
  Sender: FDA-Public Use
  Company Number: JP-BAYER-200811455BYL

PATIENT
  Age: 50 Year
  Sex: Female
  Weight: 42 kg

DRUGS (7)
  1. NEXAVAR [Suspect]
     Indication: RENAL CELL CARCINOMA STAGE IV
     Dosage: UNIT DOSE: 200 MG
     Route: 048
     Dates: start: 20080602, end: 20080627
  2. NEXAVAR [Suspect]
     Dosage: UNIT DOSE: 200 MG
     Route: 048
     Dates: start: 20080628, end: 20080703
  3. NEXAVAR [Suspect]
     Dosage: UNIT DOSE: 200 MG
     Route: 048
     Dates: start: 20080801, end: 20080922
  4. SELBEX [Concomitant]
     Route: 048
     Dates: start: 20080602, end: 20080922
  5. ROHYPNOL [Concomitant]
     Route: 048
     Dates: start: 20080602, end: 20080922
  6. FERO-GRADUMET [Concomitant]
     Route: 048
     Dates: start: 20080602, end: 20080922
  7. MAGNESIUM OXIDE [Concomitant]
     Route: 048
     Dates: start: 20080602, end: 20080922

REACTIONS (4)
  - HAEMORRHAGE [None]
  - INTERSTITIAL LUNG DISEASE [None]
  - PANCREATITIS [None]
  - RESPIRATORY FAILURE [None]
